FAERS Safety Report 25193783 (Version 2)
Quarter: 2025Q2

REPORT INFORMATION
  Report Type: Spontaneous
  Country: FR (occurrence: FR)
  Receive Date: 20250414
  Receipt Date: 20250610
  Transmission Date: 20250717
  Serious: No
  Sender: JOHNSON AND JOHNSON
  Company Number: FR-JNJFOC-20250355937

PATIENT
  Age: 65 Year
  Sex: Female

DRUGS (1)
  1. GUSELKUMAB [Suspect]
     Active Substance: GUSELKUMAB
     Indication: Product used for unknown indication
     Route: 058

REACTIONS (3)
  - Device leakage [Unknown]
  - Injection site pain [Unknown]
  - Product dose omission issue [Unknown]
